FAERS Safety Report 7956064-1 (Version None)
Quarter: 2011Q4

REPORT INFORMATION
  Report Type: 
  Country: None (occurrence: None)
  Receive Date: 20111205
  Receipt Date: 20111128
  Transmission Date: 20120403
  Serious: No
  Sender: FDA-Public Use
  Company Number: US-PFIZER INC-2010136319

PATIENT
  Sex: Male
  Weight: 97.959 kg

DRUGS (4)
  1. VIAGRA [Suspect]
     Indication: ERECTILE DYSFUNCTION
     Dosage: 100 MG, AS NEEDED
     Route: 048
  2. MICARDIS [Concomitant]
     Dosage: UNK
  3. AMITRIPTYLINE [Concomitant]
     Dosage: UNK
  4. GLUCOPHAGE [Concomitant]
     Dosage: 500 MG, DAILY

REACTIONS (1)
  - DRUG INEFFECTIVE [None]
